FAERS Safety Report 18072264 (Version 1)
Quarter: 2020Q3

REPORT INFORMATION
  Report Type: Spontaneous
  Country: US (occurrence: US)
  Receive Date: 20200726
  Receipt Date: 20200726
  Transmission Date: 20201103
  Serious: No
  Sender: FDA-Public Use
  Company Number: None

PATIENT
  Age: 57 Year
  Sex: Female
  Weight: 50.4 kg

DRUGS (10)
  1. FOLIC ACID. [Concomitant]
     Active Substance: FOLIC ACID
  2. CALCIUM W/VIT D [Concomitant]
  3. PREDNISONE. [Concomitant]
     Active Substance: PREDNISONE
  4. GABAPENTIN. [Concomitant]
     Active Substance: GABAPENTIN
  5. PROLIA [Suspect]
     Active Substance: DENOSUMAB
     Indication: OSTEOPOROSIS
     Dosage: ?          QUANTITY:1 INJECTION(S);OTHER FREQUENCY:EVERY SIX MONTHS;?
     Route: 030
     Dates: start: 20200724
  6. FLURBIPROFEN. [Concomitant]
     Active Substance: FLURBIPROFEN
  7. TRAMADOL. [Concomitant]
     Active Substance: TRAMADOL
  8. EXTRA STREMGTH TYLENOL [Concomitant]
  9. METHOTREXATE. [Concomitant]
     Active Substance: METHOTREXATE
  10. HTZ [Concomitant]
     Active Substance: HYDROCHLOROTHIAZIDE

REACTIONS (8)
  - Feeling hot [None]
  - Hyperhidrosis [None]
  - Asthenia [None]
  - Dizziness [None]
  - Vomiting [None]
  - Muscular weakness [None]
  - Presyncope [None]
  - Fatigue [None]

NARRATIVE: CASE EVENT DATE: 20200724
